FAERS Safety Report 12709911 (Version 1)
Quarter: 2016Q3

REPORT INFORMATION
  Report Type: Report from Study
  Country: KR (occurrence: KR)
  Receive Date: 20160901
  Receipt Date: 20160901
  Transmission Date: 20161109
  Serious: Yes (Death, Other)
  Sender: FDA-Public Use
  Company Number: KR-ROCHE-1823567

PATIENT

DRUGS (1)
  1. RITUXIMAB [Suspect]
     Active Substance: RITUXIMAB
     Indication: PROPHYLAXIS AGAINST TRANSPLANT REJECTION
     Route: 065

REACTIONS (2)
  - Hepatitis B [Unknown]
  - Hepatic failure [Fatal]
